FAERS Safety Report 15693735 (Version 1)
Quarter: 2018Q4

REPORT INFORMATION
  Report Type: Spontaneous
  Country: PT (occurrence: PT)
  Receive Date: 20181206
  Receipt Date: 20181206
  Transmission Date: 20190205
  Serious: Yes (Other)
  Sender: FDA-Public Use
  Company Number: PT-AUROBINDO-AUR-APL-2018-058966

PATIENT
  Age: 28 Year
  Sex: Male

DRUGS (1)
  1. CEFUROXIME. [Suspect]
     Active Substance: CEFUROXIME
     Indication: DRUG PROVOCATION TEST
     Dosage: 500 MG, BID, 12 HOUR
     Route: 048

REACTIONS (6)
  - Neutrophilia [Recovered/Resolved]
  - Type IV hypersensitivity reaction [Recovered/Resolved]
  - Proteinuria [Recovered/Resolved]
  - Leukocytosis [Recovered/Resolved]
  - Back pain [Recovered/Resolved]
  - Asthenia [Recovered/Resolved]
